FAERS Safety Report 18590082 (Version 1)
Quarter: 2020Q4

REPORT INFORMATION
  Report Type: Spontaneous
  Country: US (occurrence: US)
  Receive Date: 20201208
  Receipt Date: 20201208
  Transmission Date: 20210114
  Serious: Yes (Life-Threatening, Hospitalization, Disabling)
  Sender: FDA-Public Use
  Company Number: None

PATIENT
  Age: 29 Year
  Sex: Female
  Weight: 54 kg

DRUGS (2)
  1. VITAMINS ANSUPPLEMENTS(LYSINE,B COMPLEX, NAC) [Concomitant]
  2. TORADOL [Suspect]
     Active Substance: KETOROLAC TROMETHAMINE
     Indication: PAIN
     Route: 042
     Dates: start: 20201021, end: 20201021

REACTIONS (3)
  - Hypotension [None]
  - Oxygen saturation decreased [None]
  - Pulmonary oedema [None]

NARRATIVE: CASE EVENT DATE: 20201021
